FAERS Safety Report 8507472-1 (Version None)
Quarter: 2012Q3

REPORT INFORMATION
  Report Type: 
  Country: None (occurrence: None)
  Receive Date: 20120712
  Receipt Date: 20101125
  Transmission Date: 20120928
  Serious: Yes (Other)
  Sender: FDA-Public Use
  Company Number: PHHY2010IT094258

PATIENT

DRUGS (3)
  1. EVEROLIMUS [Suspect]
     Indication: BREAST CANCER METASTATIC
     Dosage: 5 MG, DAILY
  2. TRASTUZUMAB [Suspect]
     Dosage: 2 MG/KG, WEEKLY
  3. VINORELBINE [Suspect]
     Dosage: 25 MG/M2 ON DAY 1 AND 8 EVERY 3 WEEKS

REACTIONS (1)
  - FEBRILE NEUTROPENIA [None]
